FAERS Safety Report 22524840 (Version 2)
Quarter: 2023Q2

REPORT INFORMATION
  Report Type: Spontaneous
  Country: US (occurrence: US)
  Receive Date: 20230606
  Receipt Date: 20230607
  Transmission Date: 20230721
  Serious: No
  Sender: FDA-Public Use
  Company Number: US-SANOFI-01637392

PATIENT
  Age: 79 Year
  Sex: Male

DRUGS (2)
  1. MULTAQ [Suspect]
     Active Substance: DRONEDARONE
     Dosage: UNK
     Route: 065
     Dates: end: 20230302
  2. SOTALOL [Concomitant]
     Active Substance: SOTALOL
     Dosage: UNK

REACTIONS (1)
  - Heart rate irregular [Unknown]
